FAERS Safety Report 5257178-X (Version None)
Quarter: 2007Q1

REPORT INFORMATION
  Report Type: 
  Country: None (occurrence: None)
  Receive Date: 20070302
  Receipt Date: 20070214
  Transmission Date: 20070707
  Serious: Yes (Death)
  Sender: FDA-Public Use
  Company Number: T200700210

PATIENT
  Age: 45 Year
  Sex: Male
  Weight: 83.9 kg

DRUGS (8)
  1. METHADOSE [Suspect]
     Indication: BACK PAIN
     Dosage: 40 MG, TID, ORAL
     Route: 048
     Dates: start: 20040811, end: 20040813
  2. DOXYLAMINE SUCCINATE [Suspect]
     Indication: NASOPHARYNGITIS
     Dosage: ORAL
     Route: 048
  3. ROXICET [Concomitant]
  4. AMITRIPTYLINE HCL [Concomitant]
  5. ZOLOFT [Concomitant]
  6. CARISOPRODOL [Concomitant]
  7. HYDROXYZINE HYRDOCHLORIDE (HYDROXYZINE HYRDOCHLORIDE) [Concomitant]
  8. METHOCARBAMOL [Concomitant]

REACTIONS (4)
  - NASOPHARYNGITIS [None]
  - POISONING [None]
  - RASH [None]
  - UNRESPONSIVE TO STIMULI [None]
